FAERS Safety Report 7615618-2 (Version None)
Quarter: 2011Q3

REPORT INFORMATION
  Report Type: 
  Country: None (occurrence: None)
  Receive Date: 20110711
  Receipt Date: 20110613
  Transmission Date: 20111222
  Serious: Yes (Hospitalization)
  Sender: FDA-Public Use
  Company Number: 14992010

PATIENT
  Age: 48 Year
  Sex: Male

DRUGS (4)
  1. PROPANOLOL HYDROCHLORIDE (PROPANOLOL HCL) [Concomitant]
  2. PLACEBO [Suspect]
     Indication: THROMBOSIS PROPHYLAXIS
     Route: 048
     Dates: start: 20080626
  3. WARFARIN SODIUM [Suspect]
     Indication: THROMBOSIS PROPHYLAXIS
     Dosage: 38 MILLIGRAM 1 WEEK
     Route: 048
     Dates: start: 20080626
  4. SIMVASTATIN [Concomitant]

REACTIONS (2)
  - ACCIDENT AT HOME [None]
  - THERMAL BURN [None]
